FAERS Safety Report 8535019-2 (Version None)
Quarter: 2012Q3

REPORT INFORMATION
  Report Type: 
  Country: None (occurrence: None)
  Receive Date: 20120724
  Receipt Date: 20120719
  Transmission Date: 20120928
  Serious: Yes (Hospitalization, Other)
  Sender: FDA-Public Use
  Company Number: US-PFIZER INC-2012124953

PATIENT
  Sex: Female

DRUGS (2)
  1. AMIODARONE HCL [Suspect]
     Dosage: 200 MG, 2X/DAY
  2. ALDACTAZIDE [Suspect]
     Dosage: 25 MG, 1/2 DAILY

REACTIONS (6)
  - CARDIAC DISORDER [None]
  - MYOCARDIAL INFARCTION [None]
  - IMPLANTABLE DEFIBRILLATOR INSERTION [None]
  - DYSPNOEA [None]
  - FATIGUE [None]
  - IMPAIRED WORK ABILITY [None]
